FAERS Safety Report 5919329-0 (Version None)
Quarter: 2008Q4

REPORT INFORMATION
  Report Type: 
  Country: None (occurrence: None)
  Receive Date: 20081015
  Receipt Date: 20081007
  Transmission Date: 20090506
  Serious: Yes (Other)
  Sender: FDA-Public Use
  Company Number: A0679820A

PATIENT
  Sex: Male

DRUGS (1)
  1. PAXIL [Suspect]
     Indication: DRUG USE FOR UNKNOWN INDICATION
     Route: 048

REACTIONS (8)
  - AORTIC VALVE INCOMPETENCE [None]
  - DEVELOPMENTAL DELAY [None]
  - DRUG EXPOSURE DURING PREGNANCY [None]
  - PULMONARY ARTERIOPATHY [None]
  - PULMONARY VALVE STENOSIS [None]
  - RIGHT VENTRICULAR HYPERTROPHY [None]
  - SUPRAVALVULAR AORTIC STENOSIS [None]
  - WILLIAMS SYNDROME [None]
